FAERS Safety Report 24467686 (Version 1)
Quarter: 2024Q4

REPORT INFORMATION
  Report Type: Spontaneous
  Country: US (occurrence: US)
  Receive Date: 20241018
  Receipt Date: 20241018
  Transmission Date: 20250114
  Serious: No
  Sender: UCB
  Company Number: US-UCBSA-2024025649

PATIENT
  Age: 60 Year
  Sex: Male
  Weight: 120.18 kg

DRUGS (3)
  1. BIMZELX [Suspect]
     Active Substance: BIMEKIZUMAB-BKZX
     Indication: Psoriasis
     Dosage: 320 MILLIGRAM, EV 8 WEEKS; (WEEK 8. 12 AND 16 THEN EVERY 8 WEEKS)
     Route: 058
  2. BERBERINE [Concomitant]
     Active Substance: BERBERINE
     Indication: Product used for unknown indication
     Dosage: UNK
  3. SUPERBEETS [BETA VULGARIS;MAGNESIUM ASCORBATE;MALIC ACID] [Concomitant]
     Indication: Product used for unknown indication
     Dosage: UNK

REACTIONS (5)
  - Injection site mass [Recovered/Resolved]
  - Fall [Unknown]
  - Psoriasis [Recovered/Resolved]
  - Musculoskeletal stiffness [Unknown]
  - Muscle spasms [Unknown]

NARRATIVE: CASE EVENT DATE: 20240401
